FAERS Safety Report 6475458-7 (Version None)
Quarter: 2009Q4

REPORT INFORMATION
  Report Type: 
  Country: None (occurrence: None)
  Receive Date: 20091204
  Receipt Date: 20091123
  Transmission Date: 20100525
  Serious: Yes (Other)
  Sender: FDA-Public Use
  Company Number: PHEH2009US13677

PATIENT
  Sex: Male

DRUGS (4)
  1. DIOVAN HCT [Interacting]
     Dosage: UNK
     Dates: start: 20051101
  2. DIOVAN [Suspect]
     Dosage: 80 MG, UNK
     Dates: start: 20050501
  3. NORVASC [Interacting]
     Dosage: 5 MG, UNK
  4. JANUMET [Interacting]
     Dosage: 50/500 MG, UNK

REACTIONS (6)
  - DIABETIC RETINOPATHY [None]
  - DRUG INTERACTION [None]
  - EYE OPERATION [None]
  - GLAUCOMA [None]
  - MICROALBUMINURIA [None]
  - RENAL DISORDER [None]
